FAERS Safety Report 5822598-9 (Version None)
Quarter: 2008Q3

REPORT INFORMATION
  Report Type: 
  Country: None (occurrence: None)
  Receive Date: 20080723
  Receipt Date: 20080723
  Transmission Date: 20090109
  Serious: Yes (Death)
  Sender: FDA-Public Use
  Company Number: None

PATIENT
  Sex: Female
  Weight: 46.2669 kg

DRUGS (2)
  1. TARCEVA [Suspect]
     Indication: NON-SMALL CELL LUNG CANCER
     Dosage: 100MG DAILY PO
     Route: 048
     Dates: start: 20080416, end: 20080702
  2. AVASTIN [Suspect]
     Dosage: 783MG Q21DAYS IV
     Route: 042
     Dates: start: 20080416, end: 20080528

REACTIONS (2)
  - GENERAL PHYSICAL HEALTH DETERIORATION [None]
  - PLEURAL EFFUSION [None]
